FAERS Safety Report 15263210 (Version 4)
Quarter: 2019Q3

REPORT INFORMATION
  Report Type: Report from Study
  Country: None (occurrence: US)
  Receive Date: 20180810
  Receipt Date: 20190827
  Transmission Date: 20191004
  Serious: Yes (Hospitalization, Other)
  Sender: FDA-Public Use
  Company Number: US-ABBVIE-18K-163-2429730-00

PATIENT
  Sex: Female

DRUGS (2)
  1. HUMIRA [Suspect]
     Active Substance: ADALIMUMAB
     Indication: PSORIATIC ARTHROPATHY
     Route: 058
     Dates: start: 201807, end: 2018
  2. HUMIRA [Suspect]
     Active Substance: ADALIMUMAB
     Indication: PSORIASIS

REACTIONS (9)
  - Inappropriate schedule of product administration [Recovered/Resolved]
  - Post procedural fever [Recovered/Resolved]
  - Procedural pain [Recovered/Resolved]
  - Peripheral swelling [Recovering/Resolving]
  - Psoriasis [Not Recovered/Not Resolved]
  - Fracture pain [Recovering/Resolving]
  - Lower limb fracture [Recovering/Resolving]
  - Fall [Unknown]
  - Injection site pain [Recovering/Resolving]

NARRATIVE: CASE EVENT DATE: 2018
